FAERS Safety Report 10547180 (Version 1)
Quarter: 2014Q4

REPORT INFORMATION
  Report Type: Spontaneous
  Country: FR (occurrence: FR)
  Receive Date: 20141027
  Receipt Date: 20141027
  Transmission Date: 20150529
  Serious: Yes (Hospitalization, Other)
  Sender: FDA-Public Use
  Company Number: ALCN2014FR005880

PATIENT
  Age: 86 Year
  Sex: Male
  Weight: 58 kg

DRUGS (8)
  1. CYCLOPENTOLATE HCL [Suspect]
     Active Substance: CYCLOPENTOLATE HYDROCHLORIDE
     Indication: CATARACT OPERATION
     Dosage: 2 GTT, ONCE/SINGLE (WITHIN 1 HOUR INTERVAL)
     Route: 047
     Dates: start: 20140930, end: 20140930
  2. RIFAMYCINE [Suspect]
     Active Substance: RIFAMYCIN SODIUM
     Indication: CATARACT OPERATION
     Dosage: UNK
     Route: 047
     Dates: start: 20140930, end: 20140930
  3. HYPNOVEL [Suspect]
     Active Substance: MIDAZOLAM\MIDAZOLAM HYDROCHLORIDE
     Indication: CATARACT OPERATION
     Dosage: 1 MG, ONCE/SINGLE
     Route: 042
     Dates: start: 20140930, end: 20140930
  4. OXYBUPROCAINE [Suspect]
     Active Substance: BENOXINATE
     Indication: CATARACT OPERATION
     Dosage: 1 DF, ONCE/SINGLE
     Dates: start: 20140930
  5. ATROPINE SULFATE. [Suspect]
     Active Substance: ATROPINE SULFATE
     Indication: CATARACT OPERATION
     Dosage: 0.75 MG, ONCE/SINGLE
     Dates: start: 20140930, end: 20140930
  6. BETADINE [Suspect]
     Active Substance: POVIDONE-IODINE
     Indication: CATARACT OPERATION
     Dosage: UNK
     Route: 047
     Dates: start: 20140930, end: 20140930
  7. XYLOCAINE [Suspect]
     Active Substance: LIDOCAINE HYDROCHLORIDE
     Indication: CATARACT OPERATION
     Dosage: 130 MG, ONCE/SINGLE
     Route: 047
     Dates: start: 20140930, end: 20140930
  8. NEOSYNEPHRINE [Suspect]
     Active Substance: PHENYLEPHRINE HYDROCHLORIDE
     Indication: CATARACT OPERATION
     Dosage: 2 GTT, ONCE/SINGLE (WITHIN 1 HOUR INTERVAL)
     Route: 047
     Dates: start: 20140930, end: 20140930

REACTIONS (3)
  - Bradycardia [Recovering/Resolving]
  - Blood pressure decreased [Recovered/Resolved]
  - Malaise [Recovered/Resolved]

NARRATIVE: CASE EVENT DATE: 20140930
